FAERS Safety Report 6535888-1 (Version None)
Quarter: 2010Q1

REPORT INFORMATION
  Report Type: 
  Country: None (occurrence: None)
  Receive Date: 20100105
  Receipt Date: 20091224
  Transmission Date: 20100710
  Serious: Yes (Hospitalization)
  Sender: FDA-Public Use
  Company Number: FABR-1000756

PATIENT
  Age: 30 Year
  Sex: Male

DRUGS (4)
  1. FABRAZYME [Suspect]
     Indication: FABRY'S DISEASE
     Dosage: 55 MG, Q2W, INTRAVENOUS
     Route: 042
     Dates: start: 20080704
  2. CARBAMAZEPINE [Concomitant]
  3. IBUPROFEN [Concomitant]
  4. HYDROXYZINE PAMOATE [Concomitant]

REACTIONS (8)
  - CHILLS [None]
  - DYSPNOEA [None]
  - MUSCULOSKELETAL CHEST PAIN [None]
  - MUSCULOSKELETAL PAIN [None]
  - NASAL CONGESTION [None]
  - PYREXIA [None]
  - RHINORRHOEA [None]
  - TREMOR [None]
